FAERS Safety Report 8024076-8 (Version None)
Quarter: 2011Q4

REPORT INFORMATION
  Report Type: 
  Country: None (occurrence: None)
  Receive Date: 20111130
  Receipt Date: 20101027
  Transmission Date: 20120403
  Serious: Yes (Hospitalization, Other)
  Sender: FDA-Public Use
  Company Number: 317209

PATIENT
  Age: 57 Year
  Sex: Female

DRUGS (3)
  1. NOVOLOG [Suspect]
     Indication: TYPE 1 DIABETES MELLITUS
     Dosage: 4 U AT BASELINE; PLUS SLIDING SCALE, SUBCUTANEOUS
     Route: 058
     Dates: start: 20100401
  2. LANTUS [Suspect]
     Indication: TYPE 1 DIABETES MELLITUS
     Dosage: 16 9 UNITS IN THE MORNING, SUBCUTANEOUS
     Route: 058
     Dates: start: 20100401
  3. LASIX /00032601/ (FUROSEMIDE) UNK TO 09/16/2010 09/16/2010 TO 10/01/20 [Concomitant]

REACTIONS (4)
  - HYPOGLYCAEMIC UNCONSCIOUSNESS [None]
  - HYPOGLYCAEMIA UNAWARENESS [None]
  - BLOOD GLUCOSE INCREASED [None]
  - BLOOD GLUCOSE DECREASED [None]
